FAERS Safety Report 4564672-3 (Version None)
Quarter: 2005Q1

REPORT INFORMATION
  Report Type: 
  Country: None (occurrence: None)
  Receive Date: 20050126
  Receipt Date: 20050111
  Transmission Date: 20050727
  Serious: Yes (Hospitalization)
  Sender: FDA-Public Use
  Company Number: S03-341-726

PATIENT
  Age: 73 Year
  Sex: Female
  Weight: 56 kg

DRUGS (14)
  1. VELCADE [Suspect]
     Indication: MULTIPLE MYELOMA
     Dosage: 2.10 MG, 3/WEEK, IV BOLUS
     Route: 040
     Dates: start: 20031031, end: 20031110
  2. MOBLOC (FELODIPINE, METOPROLOL SUCCINATE) [Concomitant]
  3. MAGNESIUM (MAGNESIUM) [Concomitant]
  4. CALCIUM (CALCIUM) [Concomitant]
  5. VIGANTOLETTEN (COLECALCIFEROL) [Concomitant]
  6. PANTOZOL (PANTOPRAZOLE SODIUM) [Concomitant]
  7. HYDROCORTISON (HYDROCORTISONE) [Concomitant]
  8. VALORON RETARD [Concomitant]
  9. HEPARIN [Concomitant]
  10. TAVOR (LORAZEPAM) [Concomitant]
  11. MERONEM (MEROPENEM) [Concomitant]
  12. CANCIDAS [Concomitant]
  13. DORMICUM (NITRAZEPAM) [Concomitant]
  14. ZOMETA [Concomitant]

REACTIONS (11)
  - AGITATION [None]
  - ARTHRALGIA [None]
  - CONFUSIONAL STATE [None]
  - FALL [None]
  - HAEMOGLOBIN DECREASED [None]
  - INSOMNIA [None]
  - LABORATORY TEST ABNORMAL [None]
  - PLATELET COUNT DECREASED [None]
  - PNEUMONIA [None]
  - PROTHROMBIN TIME PROLONGED [None]
  - SOFT TISSUE HAEMORRHAGE [None]
